FAERS Safety Report 19515442 (Version 1)
Quarter: 2021Q3

REPORT INFORMATION
  Report Type: Report from Study
  Country: US (occurrence: US)
  Receive Date: 20210710
  Receipt Date: 20210710
  Transmission Date: 20211014
  Serious: Yes (Other)
  Sender: FDA-Public Use
  Company Number: NVSC2021US145564

PATIENT

DRUGS (1)
  1. ENTRESTO [Suspect]
     Active Substance: SACUBITRIL\VALSARTAN
     Indication: PRODUCT USED FOR UNKNOWN INDICATION
     Dosage: UNK, BID
     Route: 048
     Dates: start: 201906

REACTIONS (7)
  - Myocardial infarction [Unknown]
  - Heart rate increased [Unknown]
  - Feeling abnormal [Unknown]
  - Swelling [Unknown]
  - Upper limb fracture [Unknown]
  - Atrial fibrillation [Unknown]
  - Fall [Unknown]
